FAERS Safety Report 6217710-6 (Version None)
Quarter: 2009Q2

REPORT INFORMATION
  Report Type: 
  Country: None (occurrence: None)
  Receive Date: 20090608
  Receipt Date: 20090528
  Transmission Date: 20091009
  Serious: Yes (Other)
  Sender: FDA-Public Use
  Company Number: NL-B.I. PHARMACEUTICALS,INC./RIDGEFIELD-2009-NL-00158NL

PATIENT
  Sex: Female
  Weight: 67 kg

DRUGS (2)
  1. SIFROL 0.35 MG [Suspect]
     Indication: PARKINSON'S DISEASE
     Dosage: 2.45MG
     Route: 048
     Dates: start: 20050203, end: 20090101
  2. AZILECT [Concomitant]
     Indication: PARKINSON'S DISEASE
     Dosage: 1MG
     Route: 048
     Dates: start: 20070101, end: 20090101

REACTIONS (5)
  - ANXIETY [None]
  - ECONOMIC PROBLEM [None]
  - EMOTIONAL DISTRESS [None]
  - GAMBLING [None]
  - SLEEP ATTACKS [None]
